FAERS Safety Report 15298859 (Version 1)
Quarter: 2018Q3

REPORT INFORMATION
  Report Type: Spontaneous
  Country: US (occurrence: US)
  Receive Date: 20180808
  Receipt Date: 20180808
  Transmission Date: 20181010
  Serious: No
  Sender: FDA-Public Use
  Company Number: None

PATIENT
  Age: 75 Year
  Sex: Female
  Weight: 89.1 kg

DRUGS (12)
  1. XELJANZ [Suspect]
     Active Substance: TOFACITINIB CITRATE
     Indication: RHEUMATOID ARTHRITIS
     Dosage: ?          QUANTITY:1 TABLET(S);?
     Route: 048
     Dates: start: 20170417, end: 20170908
  2. LOVAZA [Concomitant]
     Active Substance: OMEGA-3-ACID ETHYL ESTERS
  3. AREDS 2 [Concomitant]
     Active Substance: MINERALS\VITAMINS
  4. TUMERIC [Concomitant]
     Active Substance: HERBALS\TURMERIC
  5. MAGNESIUM [Concomitant]
     Active Substance: MAGNESIUM
  6. CELEBREX [Concomitant]
     Active Substance: CELECOXIB
  7. PREDNISONE. [Concomitant]
     Active Substance: PREDNISONE
  8. AMBIEN [Concomitant]
     Active Substance: ZOLPIDEM TARTRATE
  9. VITAMIN D [Concomitant]
     Active Substance: CHOLECALCIFEROL
  10. SINGULAIR [Concomitant]
     Active Substance: MONTELUKAST SODIUM
  11. EFFEXOR XR [Concomitant]
     Active Substance: VENLAFAXINE HYDROCHLORIDE
  12. PROBIOTICS [Concomitant]
     Active Substance: PROBIOTICS NOS

REACTIONS (7)
  - Blood cholesterol increased [None]
  - Hypoacusis [None]
  - Mouth ulceration [None]
  - Nausea [None]
  - Granuloma [None]
  - Abdominal distension [None]
  - Headache [None]

NARRATIVE: CASE EVENT DATE: 20170908
